FAERS Safety Report 10166769 (Version 1)
Quarter: 2014Q2

REPORT INFORMATION
  Report Type: Spontaneous
  Country: US (occurrence: None)
  Receive Date: 20140508
  Receipt Date: 20140508
  Transmission Date: 20141212
  Serious: Yes (Death)
  Sender: FDA-Public Use
  Company Number: FK201401602

PATIENT
  Age: 29 Year
  Sex: Male

DRUGS (5)
  1. MORPHINE SULFATE INJECTION (MANUFACTURER UNKNOWN) (MORPHINE SULFATE) (MORPHINE SULFATE) [Suspect]
     Indication: PAIN
     Dosage: FIRST 24 HOURS OF ADMISSION
     Route: 042
  2. CODEINE (CODEINE) [Suspect]
     Indication: PAIN
     Dosage: FIRST 24 HOURS OF ADMISSION
     Route: 048
  3. ACETAMINOPHEN (PARACETAMOL) [Suspect]
     Indication: PAIN
     Dosage: FIRST 24 HOURS OF ADMISSION
     Route: 048
  4. HYDROMORPHONE (HYDROMORPHONE) [Suspect]
     Indication: PAIN
     Dosage: FIRST 24 HOURS OF ADMISSION?
     Route: 042
  5. METOCLOPRAMIDE (METOCLOPRAMIDE) [Suspect]
     Indication: PAIN
     Dosage: FIRST 24 HOURS OF ADMISSION
     Route: 042

REACTIONS (7)
  - Sudden death [None]
  - Headache [None]
  - Urinary incontinence [None]
  - Feeling cold [None]
  - Blood pressure immeasurable [None]
  - Hydrocephalus [None]
  - Pulseless electrical activity [None]
